FAERS Safety Report 9904783 (Version 2)
Quarter: 2014Q1

REPORT INFORMATION
  Report Type: Report from Study
  Country: TR (occurrence: TR)
  Receive Date: 20140218
  Receipt Date: 20140218
  Transmission Date: 20141002
  Serious: Yes (Other)
  Sender: FDA-Public Use
  Company Number: TR-ASTELLAS-2014EU000011

PATIENT
  Age: 31 Year
  Sex: Male
  Weight: 65 kg

DRUGS (3)
  1. TACROLIMUS MR4 CAPSULES [Suspect]
     Indication: RENAL TRANSPLANT
     Dosage: 3 MG/DAY, UNKNOWN/D
     Route: 048
     Dates: start: 20120726
  2. PREDNISOLON                        /00016201/ [Concomitant]
     Dosage: UNK
     Route: 065
  3. RAPAMYCIN [Concomitant]
     Dosage: UNK
     Route: 065

REACTIONS (6)
  - Chronic allograft nephropathy [Recovering/Resolving]
  - Renal arteriosclerosis [Recovering/Resolving]
  - Transplant rejection [Recovering/Resolving]
  - Weight decreased [Recovering/Resolving]
  - Dizziness [Recovering/Resolving]
  - Treatment noncompliance [Unknown]
